FAERS Safety Report 20149673 (Version 5)
Quarter: 2022Q3

REPORT INFORMATION
  Report Type: Report from Study
  Country: CA (occurrence: CA)
  Receive Date: 20211206
  Receipt Date: 20220711
  Transmission Date: 20221026
  Serious: Yes (Hospitalization, Other)
  Sender: FDA-Public Use
  Company Number: CA-ABBVIE-21K-028-4169270-00

PATIENT
  Age: 77 Year
  Sex: Male

DRUGS (1)
  1. SKYRIZI [Suspect]
     Active Substance: RISANKIZUMAB-RZAA
     Indication: Psoriasis
     Route: 058
     Dates: start: 20211101

REACTIONS (13)
  - Multiple sclerosis [Not Recovered/Not Resolved]
  - Spinal fracture [Unknown]
  - Mobility decreased [Unknown]
  - Pruritus [Unknown]
  - Hypersomnia [Unknown]
  - Peripheral swelling [Unknown]
  - Gait inability [Unknown]
  - Nerve injury [Unknown]
  - Fall [Unknown]
  - Injection related reaction [Unknown]
  - Rash vesicular [Unknown]
  - Wheelchair user [Unknown]
  - Asthenia [Unknown]

NARRATIVE: CASE EVENT DATE: 20211101
